FAERS Safety Report 6177635-1 (Version None)
Quarter: 2009Q2

REPORT INFORMATION
  Report Type: 
  Country: None (occurrence: None)
  Receive Date: 20090501
  Receipt Date: 20090501
  Transmission Date: 20091009
  Serious: No
  Sender: FDA-Public Use
  Company Number: None

PATIENT
  Age: 79 Year
  Sex: Male
  Weight: 98.4 kg

DRUGS (11)
  1. MORPHINE [Suspect]
     Indication: PAIN
     Dosage: 0/2/10 PCA PEN 20MG IV CONTINOUS
     Route: 042
     Dates: start: 20090218
  2. FENTANYL-100 [Suspect]
     Dosage: 200MCG IV CONTINUOUS
     Route: 042
  3. METFORMIN HCL [Concomitant]
  4. PROPRANOLOL [Concomitant]
  5. GEMFIBROZIL [Concomitant]
  6. ALLOPURINOL [Concomitant]
  7. DIAZEPAM [Concomitant]
  8. DILTIAZEM [Concomitant]
  9. PANTOPRAZOLE SODIUM [Concomitant]
  10. CENTRUM SILVER [Concomitant]
  11. PIOGLITAZONE [Concomitant]

REACTIONS (1)
  - LETHARGY [None]
